FAERS Safety Report 22084504 (Version 1)
Quarter: 2023Q1

REPORT INFORMATION
  Report Type: Spontaneous
  Country: US (occurrence: None)
  Receive Date: 20230309
  Receipt Date: 20230309
  Transmission Date: 20230417
  Serious: Yes (Hospitalization)
  Sender: FDA-Public Use
  Company Number: None

PATIENT
  Sex: Female

DRUGS (2)
  1. DROXIDOPA [Suspect]
     Active Substance: DROXIDOPA
     Indication: Orthostatic hypotension
     Dosage: 200MG 3 TIMES A DAY BY MOUTH?
     Route: 048
     Dates: start: 20230213
  2. DROXIDOPA [Suspect]
     Active Substance: DROXIDOPA
     Indication: Syncope

REACTIONS (2)
  - Insomnia [None]
  - Hypotension [None]
